FAERS Safety Report 21923220 (Version 3)
Quarter: 2023Q1

REPORT INFORMATION
  Report Type: Report from Study
  Country: CO (occurrence: CO)
  Receive Date: 20230129
  Receipt Date: 20230303
  Transmission Date: 20230418
  Serious: Yes (Hospitalization, Other)
  Sender: FDA-Public Use
  Company Number: CO-ABBVIE-22K-036-4278374-00

PATIENT
  Sex: Male
  Weight: 60 kg

DRUGS (4)
  1. VENCLEXTA [Suspect]
     Active Substance: VENETOCLAX
     Indication: Acute myeloid leukaemia
     Route: 048
  2. VENCLEXTA [Suspect]
     Active Substance: VENETOCLAX
     Indication: Acute myeloid leukaemia
     Route: 048
     Dates: start: 20210913, end: 20230209
  3. AZACITIDINE [Suspect]
     Active Substance: AZACITIDINE
     Indication: Chemotherapy
     Route: 065
  4. AZACITIDINE [Suspect]
     Active Substance: AZACITIDINE
     Indication: Chemotherapy
     Route: 065
     Dates: start: 2023

REACTIONS (13)
  - Gastrointestinal infection [Unknown]
  - Blast cell count increased [Recovering/Resolving]
  - Drug intolerance [Not Recovered/Not Resolved]
  - Drug ineffective [Recovering/Resolving]
  - Malaise [Recovering/Resolving]
  - Abdominal pain [Recovering/Resolving]
  - Diarrhoea [Not Recovered/Not Resolved]
  - Diarrhoea [Not Recovered/Not Resolved]
  - Portal hypertension [Not Recovered/Not Resolved]
  - Malaise [Recovered/Resolved]
  - Gastric disorder [Not Recovered/Not Resolved]
  - Ascites [Recovering/Resolving]
  - Abdominal cavity drainage [Recovering/Resolving]

NARRATIVE: CASE EVENT DATE: 20210101
